FAERS Safety Report 23298240 (Version 1)
Quarter: 2023Q4

REPORT INFORMATION
  Report Type: Spontaneous
  Country: US (occurrence: None)
  Receive Date: 20231214
  Receipt Date: 20231214
  Transmission Date: 20240110
  Serious: Yes (Other)
  Sender: FDA-Public Use
  Company Number: None

PATIENT
  Age: 57 Year
  Sex: Male
  Weight: 114.75 kg

DRUGS (5)
  1. BENZTROPINE [Suspect]
     Active Substance: BENZTROPINE
     Indication: Mental disorder
     Dosage: FREQUENCY : TWICE A DAY;?
     Route: 048
     Dates: start: 20231015
  2. CARBAMAZEPINE [Suspect]
     Active Substance: CARBAMAZEPINE
     Indication: Mental disorder
     Dosage: FREQUENCY : TWICE A DAY;?
     Route: 048
     Dates: start: 20231015
  3. OLANZAPINE [Suspect]
     Active Substance: OLANZAPINE
     Dates: start: 20231015
  4. Fluphenazine hydrocloride [Concomitant]
  5. VITAMIN B [Concomitant]
     Active Substance: VITAMIN B

REACTIONS (4)
  - Headache [None]
  - Pain in extremity [None]
  - Back pain [None]
  - Genital pain [None]

NARRATIVE: CASE EVENT DATE: 20231213
